FAERS Safety Report 5163142-1 (Version None)
Quarter: 2006Q4

REPORT INFORMATION
  Report Type: 
  Country: None (occurrence: None)
  Receive Date: 20061204
  Receipt Date: 20061122
  Transmission Date: 20070319
  Serious: Yes (Other)
  Sender: FDA-Public Use
  Company Number: US-JNJFOC-20061105829

PATIENT
  Sex: Female
  Weight: 68.04 kg

DRUGS (4)
  1. DURAGESIC-100 [Suspect]
     Indication: FIBROMYALGIA
     Route: 062
  2. BUSPAR [Concomitant]
     Indication: ANXIETY
     Route: 048
  3. BIRTH CONTROL PILL [Concomitant]
     Indication: CONTRACEPTION
     Route: 048
  4. OXYCODONE HCL [Concomitant]
     Indication: FIBROMYALGIA
     Dosage: EVERY 4-6 HOURS
     Route: 048

REACTIONS (3)
  - HYPOAESTHESIA [None]
  - NEURALGIA [None]
  - PHARMACEUTICAL PRODUCT COMPLAINT [None]
